FAERS Safety Report 9921876 (Version 1)
Quarter: 2014Q1

REPORT INFORMATION
  Report Type: Spontaneous
  Country: FR (occurrence: FR)
  Receive Date: 20140225
  Receipt Date: 20140225
  Transmission Date: 20141002
  Serious: Yes (Hospitalization)
  Sender: FDA-Public Use
  Company Number: FR-ELI_LILLY_AND_COMPANY-FR201402004247

PATIENT
  Age: 50 Year
  Sex: Male

DRUGS (7)
  1. CYMBALTA [Suspect]
     Indication: PRODUCT USED FOR UNKNOWN INDICATION
     Dosage: 90 MG, QD
     Route: 065
  2. BACLOFEN [Concomitant]
     Indication: PRODUCT USED FOR UNKNOWN INDICATION
     Dosage: 4 DF, EACH MORNING
     Route: 065
  3. BACLOFEN [Concomitant]
     Dosage: 2 DF, OTHER
     Route: 065
  4. BACLOFEN [Concomitant]
     Dosage: 4 DF, EACH EVENING
     Route: 065
  5. TERCIAN                            /00759301/ [Concomitant]
     Indication: PRODUCT USED FOR UNKNOWN INDICATION
     Dosage: UNK, PRN
     Route: 065
  6. VALIUM                             /00017001/ [Concomitant]
     Indication: PRODUCT USED FOR UNKNOWN INDICATION
     Dosage: 1 DF, EACH MORNING
     Route: 065
  7. VALIUM                             /00017001/ [Concomitant]
     Dosage: 1 DF, EACH EVENING
     Route: 065

REACTIONS (1)
  - Oedema peripheral [Unknown]
